FAERS Safety Report 6219426-9 (Version None)
Quarter: 2009Q2

REPORT INFORMATION
  Report Type: 
  Country: None (occurrence: None)
  Receive Date: 20090605
  Receipt Date: 20090528
  Transmission Date: 20091009
  Serious: Yes (Hospitalization)
  Sender: FDA-Public Use
  Company Number: 2009-GWUS-0320

PATIENT
  Age: 57 Year
  Sex: Female

DRUGS (3)
  1. ALDARA [Suspect]
     Indication: PRECANCEROUS CELLS PRESENT
     Dosage: APPLICATION - 3XW - TOPICAL
     Route: 061
     Dates: start: 20090101, end: 20090217
  2. BACTRIM [Suspect]
     Indication: INFECTION
     Dosage: UNK - UNK - ORAL
     Route: 048
     Dates: start: 20090112, end: 20090101
  3. PREMPRO [Concomitant]

REACTIONS (11)
  - APPLICATION SITE DISCHARGE [None]
  - APPLICATION SITE DISCOLOURATION [None]
  - APPLICATION SITE ERYTHEMA [None]
  - APPLICATION SITE INFECTION [None]
  - APPLICATION SITE SCAB [None]
  - BREAST INFECTION [None]
  - CONDITION AGGRAVATED [None]
  - ERYTHEMA [None]
  - PRURITUS [None]
  - TREATMENT NONCOMPLIANCE [None]
  - URTICARIA [None]
